FAERS Safety Report 13724999 (Version 2)
Quarter: 2017Q3

REPORT INFORMATION
  Report Type: Spontaneous
  Country: US (occurrence: US)
  Receive Date: 20170706
  Receipt Date: 20170714
  Transmission Date: 20171127
  Serious: Yes (Other)
  Sender: FDA-Public Use
  Company Number: US-TEVA-784747ACC

PATIENT
  Age: 19 Year
  Sex: Female
  Weight: 108.51 kg

DRUGS (1)
  1. PLAN B ONE-STEP [Suspect]
     Active Substance: LEVONORGESTREL
     Indication: POST COITAL CONTRACEPTION
     Dates: start: 20170624, end: 20170624

REACTIONS (7)
  - Pregnancy after post coital contraception [Unknown]
  - Maternal exposure during pregnancy [Unknown]
  - Intentional product misuse [Unknown]
  - Rhinorrhoea [Unknown]
  - Vomiting [Recovered/Resolved]
  - Nasopharyngitis [Unknown]
  - Nausea [Unknown]

NARRATIVE: CASE EVENT DATE: 20170624
